FAERS Safety Report 23363057 (Version 2)
Quarter: 2024Q1

REPORT INFORMATION
  Report Type: Spontaneous
  Country: US (occurrence: US)
  Receive Date: 20240103
  Receipt Date: 20240327
  Transmission Date: 20240409
  Serious: No
  Sender: FDA-Public Use
  Company Number: US-PFIZER INC-202300456006

PATIENT
  Age: 64 Year
  Sex: Female
  Weight: 74.84 kg

DRUGS (10)
  1. PAXLOVID [Suspect]
     Active Substance: NIRMATRELVIR\RITONAVIR
     Indication: COVID-19 treatment
     Dosage: [PF-07321332 300 MG]/[RITONAVIR 100 MG]; 2X/DAY;
  2. MOUNJARO [Concomitant]
     Active Substance: TIRZEPATIDE
     Dosage: 12.5 MG, WEEKLY
  3. BUPROPION [Concomitant]
     Active Substance: BUPROPION
     Dosage: 300 MG, 1X/DAY
  4. BIOTIN [Concomitant]
     Active Substance: BIOTIN
     Dosage: 5000 MG
  5. CYANOCOBALAMIN [Concomitant]
     Active Substance: CYANOCOBALAMIN
     Dosage: 5000 MG
  6. ANASTROZOLE [Concomitant]
     Active Substance: ANASTROZOLE
     Dosage: 1 MG
  7. ZYRTEC [Concomitant]
     Active Substance: CETIRIZINE HYDROCHLORIDE
     Dosage: 10 MG
  8. ASPIRIN [Concomitant]
     Active Substance: ASPIRIN
     Dosage: UNK
  9. VITAMIN C [Concomitant]
     Active Substance: ASCORBIC ACID
     Dosage: 500 MG
  10. ZINC [Concomitant]
     Active Substance: PYRITHIONE ZINC\ZINC\ZINC CHLORIDE
     Dosage: 125 MG

REACTIONS (1)
  - Dysgeusia [Recovered/Resolved]
